FAERS Safety Report 9243031 (Version 2)
Quarter: 2013Q2

REPORT INFORMATION
  Report Type: Spontaneous
  Country: BR (occurrence: BR)
  Receive Date: 20130419
  Receipt Date: 20130424
  Transmission Date: 20140414
  Serious: Yes (Hospitalization)
  Sender: FDA-Public Use
  Company Number: BR-ASTRAZENECA-2013SE25155

PATIENT
  Age: 57 Year
  Sex: Male
  Weight: 80 kg

DRUGS (4)
  1. ATACAND [Suspect]
     Route: 048
     Dates: end: 201304
  2. CRESTOR [Suspect]
     Dosage: DAILY
     Route: 048
  3. CARDIZEM [Concomitant]
     Dates: end: 201304
  4. ASA [Concomitant]

REACTIONS (2)
  - Myocardial infarction [Recovered/Resolved]
  - Fatigue [Not Recovered/Not Resolved]
